FAERS Safety Report 5050030-4 (Version None)
Quarter: 2006Q2

REPORT INFORMATION
  Report Type: 
  Country: None (occurrence: None)
  Receive Date: 20060601
  Receipt Date: 20060216
  Transmission Date: 20061013
  Serious: No
  Sender: FDA-Public Use
  Company Number: US200602003484

PATIENT
  Age: 60 Year
  Sex: Female

DRUGS (9)
  1. CYMBALTA [Suspect]
     Indication: DEPRESSION
     Dosage: 60 MG, DAILY (1/D), ORAL
     Route: 048
     Dates: start: 20060124
  2. HYDROCHLOROTHIAZIDE [Concomitant]
  3. QUINAPRIL HCL [Concomitant]
  4. IMIPRAMINE [Concomitant]
  5. LEVOXYL [Concomitant]
  6. ESTRADIOL [Concomitant]
  7. CLONAZEPAM [Concomitant]
  8. FOSAMAX /ITA/ (ALENDRONATE SODIUM) [Concomitant]
  9. ZANTAC [Concomitant]

REACTIONS (4)
  - DRY MOUTH [None]
  - INSOMNIA [None]
  - TINNITUS [None]
  - YAWNING [None]
